APPROVED DRUG PRODUCT: ISOETHARINE HYDROCHLORIDE S/F
Active Ingredient: ISOETHARINE HYDROCHLORIDE
Strength: 0.25%
Dosage Form/Route: SOLUTION;INHALATION
Application: A089820 | Product #001
Applicant: DEY LP
Approved: Nov 22, 1988 | RLD: No | RS: No | Type: DISCN